FAERS Safety Report 5078634-3 (Version None)
Quarter: 2006Q3

REPORT INFORMATION
  Report Type: 
  Country: None (occurrence: None)
  Receive Date: 20060808
  Receipt Date: 20060801
  Transmission Date: 20061208
  Serious: Yes (Death)
  Sender: FDA-Public Use
  Company Number: 2006RR-03132

PATIENT
  Age: 81 Year
  Sex: Male
  Weight: 72 kg

DRUGS (5)
  1. SIMVASTATIN [Suspect]
     Dosage: 40 MG, ORAL
     Route: 048
     Dates: start: 20060311, end: 20060501
  2. ASPIRIN [Concomitant]
  3. FUROSEMIDE [Concomitant]
  4. NAPROXEN [Concomitant]
  5. SODIUM FUSIDATE [Concomitant]

REACTIONS (2)
  - MYOPATHY [None]
  - RHABDOMYOLYSIS [None]
